FAERS Safety Report 14731708 (Version 2)
Quarter: 2018Q2

REPORT INFORMATION
  Report Type: Spontaneous
  Country: BE (occurrence: BE)
  Receive Date: 20180407
  Receipt Date: 20180618
  Transmission Date: 20180711
  Serious: Yes (Other)
  Sender: FDA-Public Use
  Company Number: PHHY2018BE057234

PATIENT
  Age: 30 Year
  Sex: Female

DRUGS (2)
  1. GILENYA [Suspect]
     Active Substance: FINGOLIMOD HYDROCHLORIDE
     Dosage: 1 DF, QOD
     Route: 048
  2. GILENYA [Suspect]
     Active Substance: FINGOLIMOD HYDROCHLORIDE
     Indication: MULTIPLE SCLEROSIS
     Dosage: UNK
     Route: 048
     Dates: start: 201712

REACTIONS (9)
  - Herpes virus infection [Unknown]
  - Hypoaesthesia [Recovered/Resolved]
  - Blister [Recovered/Resolved]
  - Central nervous system lesion [Unknown]
  - Swelling [Recovered/Resolved]
  - Lymphocyte count decreased [Recovered/Resolved]
  - Tachycardia [Recovered/Resolved]
  - Prescribed underdose [Unknown]
  - Palpitations [Recovered/Resolved]

NARRATIVE: CASE EVENT DATE: 20180112
